FAERS Safety Report 20974199 (Version 1)
Quarter: 2022Q2

REPORT INFORMATION
  Report Type: Spontaneous
  Country: US (occurrence: US)
  Receive Date: 20220617
  Receipt Date: 20220617
  Transmission Date: 20220721
  Serious: No
  Sender: FDA-Public Use
  Company Number: US-BAUSCH-BL-2022-014453

PATIENT
  Age: 54 Year
  Sex: Female
  Weight: 63.560 kg

DRUGS (1)
  1. DEXAMETHASONE\NEOMYCIN\POLYMYXIN B SULFATE [Suspect]
     Active Substance: DEXAMETHASONE\NEOMYCIN\POLYMYXIN B SULFATE
     Indication: Ocular rosacea
     Dosage: PATIENT USED THE PRODUCT FOR 3 DAYS EVERY EVENING
     Route: 047
     Dates: start: 2022, end: 202205

REACTIONS (4)
  - Application site pruritus [Recovered/Resolved]
  - Eyelid thickening [Recovered/Resolved]
  - Application site erythema [Recovered/Resolved]
  - Halo vision [Recovered/Resolved]

NARRATIVE: CASE EVENT DATE: 20220101
